FAERS Safety Report 4402341-0 (Version None)
Quarter: 2004Q3

REPORT INFORMATION
  Report Type: 
  Country: None (occurrence: None)
  Receive Date: 20040720
  Receipt Date: 20040715
  Transmission Date: 20050211
  Serious: Yes (Hospitalization)
  Sender: FDA-Public Use
  Company Number: FR-BRISTOL-MYERS SQUIBB COMPANY-12641502

PATIENT
  Age: 81 Year
  Sex: Female

DRUGS (3)
  1. ELISOR [Suspect]
     Route: 048
     Dates: start: 20031115, end: 20040216
  2. ATACAND [Concomitant]
  3. PLAVIX [Concomitant]

REACTIONS (1)
  - MYOSITIS [None]
